FAERS Safety Report 8916406 (Version 2)
Quarter: 2013Q1

REPORT INFORMATION
  Report Type: Spontaneous
  Country: US (occurrence: US)
  Receive Date: 20121120
  Receipt Date: 20130130
  Transmission Date: 20140127
  Serious: Yes (Hospitalization)
  Sender: FDA-Public Use
  Company Number: US-ELI_LILLY_AND_COMPANY-US201211002880

PATIENT
  Age: 86 Year
  Sex: Female
  Weight: 62.59 kg

DRUGS (5)
  1. FORTEO [Suspect]
     Indication: OSTEOPOROSIS
     Dosage: 20 UG, QD
     Route: 058
     Dates: start: 20111120
  2. CHEMOTHERAPEUTICS [Concomitant]
     Indication: COLON CANCER
     Dosage: UNK
     Dates: start: 2012
  3. LEVOTHROID [Concomitant]
     Dosage: UNK, QD
     Route: 065
  4. CENTRUM SILVER [Concomitant]
     Dosage: UNK, UNKNOWN
     Route: 065
  5. CALCIUM MAGNESIUM [Concomitant]
     Dosage: UNK, UNKNOWN
     Route: 065

REACTIONS (7)
  - Colon cancer [Recovered/Resolved]
  - Hypophagia [Unknown]
  - Oligodipsia [Unknown]
  - Fatigue [Unknown]
  - Asthenia [Unknown]
  - Anaemia [Unknown]
  - Dehydration [Unknown]
